FAERS Safety Report 20772976 (Version 1)
Quarter: 2022Q2

REPORT INFORMATION
  Report Type: Spontaneous
  Country: US (occurrence: US)
  Receive Date: 20220502
  Receipt Date: 20220502
  Transmission Date: 20220721
  Serious: Yes (Other)
  Sender: FDA-Public Use
  Company Number: US-ALLERGAN-2208969US

PATIENT
  Sex: Male

DRUGS (3)
  1. COMBIGAN [Suspect]
     Active Substance: BRIMONIDINE TARTRATE\TIMOLOL MALEATE
     Indication: Glaucoma
     Dosage: UNK
     Route: 047
     Dates: end: 202112
  2. COMBIGAN [Suspect]
     Active Substance: BRIMONIDINE TARTRATE\TIMOLOL MALEATE
     Indication: Intraocular pressure increased
  3. DEXAMETHASONE [Concomitant]
     Active Substance: DEXAMETHASONE
     Indication: Dry eye
     Dosage: UNK UNK, BID
     Route: 047

REACTIONS (13)
  - Blindness [Unknown]
  - Intraocular pressure increased [Recovering/Resolving]
  - Eye inflammation [Not Recovered/Not Resolved]
  - Eye haemorrhage [Recovered/Resolved]
  - Eye pain [Unknown]
  - Ocular discomfort [Unknown]
  - Eye discharge [Unknown]
  - Burning sensation [Unknown]
  - Poor quality product administered [Unknown]
  - Visual impairment [Not Recovered/Not Resolved]
  - Dry eye [Unknown]
  - Reaction to preservatives [Unknown]
  - Product quality issue [Unknown]

NARRATIVE: CASE EVENT DATE: 20210501
